FAERS Safety Report 9985371 (Version 1)
Quarter: 2014Q1

REPORT INFORMATION
  Report Type: Spontaneous
  Country: PL (occurrence: PL)
  Receive Date: 20140307
  Receipt Date: 20140307
  Transmission Date: 20141002
  Serious: Yes (Other)
  Sender: FDA-Public Use
  Company Number: PL-BAXTER-2014BAX010387

PATIENT
  Age: 65 Year
  Sex: Male

DRUGS (2)
  1. DIANEAL PD4 (GLUKOZA 1,36%) ZESTAW DO DIALIZY OTRZEWNOWEJ [Suspect]
     Indication: PERITONEAL DIALYSIS
     Route: 033
  2. EXTRANEAL ZESTAW DO DIALIZY OTRZEWNOWEJ [Suspect]
     Indication: PERITONEAL DIALYSIS
     Route: 033

REACTIONS (5)
  - Lung neoplasm malignant [Unknown]
  - Pulmonary fistula [Unknown]
  - Peritonitis [Unknown]
  - Blood count abnormal [Unknown]
  - Oncologic complication [Unknown]
